FAERS Safety Report 15787465 (Version 1)
Quarter: 2019Q1

REPORT INFORMATION
  Report Type: Spontaneous
  Country: US (occurrence: US)
  Receive Date: 20190103
  Receipt Date: 20190103
  Transmission Date: 20190417
  Serious: No
  Sender: FDA-Public Use
  Company Number: US-AVEDRO-AVE-2018-0280-AE

PATIENT
  Age: 34 Year
  Sex: Female

DRUGS (2)
  1. AVEDRO CROSS-LINKING PRODUCT(S), UNSPECIFIED (RIBOFLAVIN 5^-PHOSPHATE SODIUM) [Suspect]
     Active Substance: RIBOFLAVIN 5^-PHOSPHATE SODIUM
     Indication: KERATOCONUS
     Route: 047
     Dates: start: 201809, end: 201809
  2. AVEDRO CROSS-LINKING PRODUCT(S), UNSPECIFIED (RIBOFLAVIN 5^-PHOSPHATE SODIUM) [Suspect]
     Active Substance: RIBOFLAVIN 5^-PHOSPHATE SODIUM
     Route: 047
     Dates: start: 20181203, end: 20181203

REACTIONS (2)
  - Eye pain [Unknown]
  - Vision blurred [Recovering/Resolving]

NARRATIVE: CASE EVENT DATE: 201809
